FAERS Safety Report 6522328-1 (Version None)
Quarter: 2009Q4

REPORT INFORMATION
  Report Type: 
  Country: None (occurrence: None)
  Receive Date: 20091230
  Receipt Date: 20091222
  Transmission Date: 20100525
  Serious: Yes (Hospitalization)
  Sender: FDA-Public Use
  Company Number: B0619463A

PATIENT
  Sex: Male

DRUGS (6)
  1. ZELITREX [Suspect]
     Indication: DRUG USE FOR UNKNOWN INDICATION
     Dosage: 500MG FOUR TIMES PER DAY
     Route: 048
     Dates: start: 20091112, end: 20091117
  2. COSOPT [Concomitant]
     Dosage: 1DROP TWICE PER DAY
     Route: 047
     Dates: start: 20091112, end: 20091117
  3. DACRYOSERUM [Concomitant]
     Dosage: 1DROP TWICE PER DAY
     Route: 047
     Dates: start: 20091112, end: 20091117
  4. DEXAMETHASONE [Concomitant]
     Dosage: 1DROP SIX TIMES PER DAY
     Route: 047
     Dates: start: 20091112, end: 20091128
  5. MYDRIATICUM [Concomitant]
     Dosage: 1DROP PER DAY
     Route: 047
     Dates: start: 20091112, end: 20091128
  6. VITAMIN A OINTMENT [Concomitant]
     Dosage: 1APP THREE TIMES PER DAY
     Route: 047
     Dates: start: 20091112, end: 20091128

REACTIONS (15)
  - AGGRESSION [None]
  - ALTERED STATE OF CONSCIOUSNESS [None]
  - CONFUSIONAL STATE [None]
  - DECREASED APPETITE [None]
  - DEHYDRATION [None]
  - DISORIENTATION [None]
  - FALL [None]
  - FEELING COLD [None]
  - GENERAL PHYSICAL HEALTH DETERIORATION [None]
  - HEART SOUNDS ABNORMAL [None]
  - HYPOCALCAEMIA [None]
  - HYPOTHERMIA [None]
  - IMPAIRED SELF-CARE [None]
  - RENAL FAILURE [None]
  - WEIGHT DECREASED [None]
